FAERS Safety Report 5006551-3 (Version None)
Quarter: 2006Q2

REPORT INFORMATION
  Report Type: 
  Country: None (occurrence: None)
  Receive Date: 20060516
  Receipt Date: 20060503
  Transmission Date: 20061013
  Serious: Yes (Other)
  Sender: FDA-Public Use
  Company Number: 230001K06DEU

PATIENT
  Sex: Female

DRUGS (1)
  1. REBIF [Suspect]
     Dates: end: 20060101

REACTIONS (2)
  - DIABETES MELLITUS [None]
  - HEPATOCELLULAR DAMAGE [None]
